FAERS Safety Report 9868674 (Version 4)
Quarter: 2014Q2

REPORT INFORMATION
  Report Type: Report from Study
  Country: TR (occurrence: TR)
  Receive Date: 20140204
  Receipt Date: 20140416
  Transmission Date: 20141212
  Serious: Yes (Hospitalization)
  Sender: FDA-Public Use
  Company Number: TR-ABBVIE-14P-161-1189484-00

PATIENT
  Age: 69 Year
  Sex: Female
  Weight: 85 kg

DRUGS (5)
  1. HUMIRA [Suspect]
     Indication: PSORIASIS
     Route: 058
     Dates: start: 20131107, end: 20140113
  2. HUMIRA [Suspect]
     Route: 058
     Dates: start: 20140401
  3. DIAFORMIN [Concomitant]
     Indication: DIABETES MELLITUS
     Route: 048
     Dates: start: 20120101
  4. HYZAAR [Concomitant]
     Indication: HYPERTENSION
     Dosage: 100 /25 MG
     Route: 048
     Dates: start: 20120101
  5. NOVORAPID [Concomitant]
     Indication: DIABETES MELLITUS
     Dosage: 3ML 100 IU
     Route: 051
     Dates: start: 20130101

REACTIONS (2)
  - Pain [Recovered/Resolved]
  - Urinary tract infection [Recovered/Resolved]
